FAERS Safety Report 7478433-9 (Version None)
Quarter: 2011Q2

REPORT INFORMATION
  Report Type: 
  Country: None (occurrence: None)
  Receive Date: 20110513
  Receipt Date: 20100603
  Transmission Date: 20111010
  Serious: No
  Sender: FDA-Public Use
  Company Number: US-PFIZER INC-2010069930

PATIENT

DRUGS (2)
  1. IBUPROFEN [Suspect]
  2. CELEBREX [Suspect]
     Indication: ARTHRITIS

REACTIONS (1)
  - NO ADVERSE EVENT [None]
